FAERS Safety Report 7137508-4 (Version None)
Quarter: 2010Q4

REPORT INFORMATION
  Report Type: 
  Country: None (occurrence: None)
  Receive Date: 20101206
  Receipt Date: 20101130
  Transmission Date: 20110411
  Serious: Yes (Death, Other)
  Sender: FDA-Public Use
  Company Number: PHHY2010IT74457

PATIENT
  Sex: Female

DRUGS (19)
  1. GLIVEC [Suspect]
     Indication: SCLERODERMA
     Dosage: 200 MG, DAILY
     Route: 048
     Dates: start: 20100526, end: 20101012
  2. NEXIUM [Concomitant]
     Dosage: 40 MG, DAILY
     Route: 048
  3. MEDROL [Concomitant]
     Dosage: 4 MG, DAILY
     Route: 048
  4. TRACLEER [Concomitant]
     Dosage: 125 MG X 2, DAILY
     Route: 048
  5. ENAPREN [Concomitant]
     Dosage: 5 MG, DAILY
     Route: 048
  6. VASEXTEN [Concomitant]
     Dosage: 20 MG, DAILY
     Route: 048
  7. SEROPRAM [Concomitant]
     Dosage: 20 MG, DAILY
     Route: 048
  8. VALIUM [Concomitant]
     Dosage: 10 MG, DAILY
     Route: 048
  9. TORADOL [Concomitant]
     Dosage: AS NEEDED
  10. MORPHINE [Concomitant]
     Dosage: INFUSION AT INCREMENTAL DOSAGES UP TO 90 MG/DAY
  11. METOCLOPRAMIDE [Concomitant]
     Dosage: AS NEEDED
  12. GLUCOSE [Concomitant]
  13. OMEPRAZOLE [Concomitant]
  14. DEXAMETHASONE [Concomitant]
     Dosage: 4 MG / DAY
  15. OCTREOTIDE ACETATE [Concomitant]
     Dosage: 100 MG X 3/DAY
     Route: 058
     Dates: start: 20101105
  16. PLASIL [Concomitant]
  17. KETOROLAC TROMETHAMINE [Concomitant]
     Dosage: UNK ENDOVENOUS
  18. LEVOXACIN [Concomitant]
     Dosage: 500 MG/DAY
  19. RADIOTHERAPY [Concomitant]
     Dosage: 3 GY
     Dates: start: 20101115

REACTIONS (31)
  - ALTERED STATE OF CONSCIOUSNESS [None]
  - ANGIOPATHY [None]
  - AORTIC ARTERIOSCLEROSIS [None]
  - ARTHRALGIA [None]
  - BACK PAIN [None]
  - BONE EROSION [None]
  - BUNDLE BRANCH BLOCK [None]
  - BUNDLE BRANCH BLOCK LEFT [None]
  - C-REACTIVE PROTEIN INCREASED [None]
  - CENTRAL NERVOUS SYSTEM NEOPLASM [None]
  - CEREBRAL DISORDER [None]
  - CHEST X-RAY ABNORMAL [None]
  - COMPUTERISED TOMOGRAM ABNORMAL [None]
  - EXOPHTHALMOS [None]
  - MENINGEAL DISORDER [None]
  - MITRAL VALVE INCOMPETENCE [None]
  - NEOPLASM MALIGNANT [None]
  - NEUROENDOCRINE CARCINOMA [None]
  - NUCLEAR MAGNETIC RESONANCE IMAGING ABNORMAL [None]
  - NUCLEAR MAGNETIC RESONANCE IMAGING BRAIN ABNORMAL [None]
  - PAIN [None]
  - PELVIC MASS [None]
  - RED BLOOD CELL SEDIMENTATION RATE INCREASED [None]
  - RESPIRATORY ARREST [None]
  - SARCOMA [None]
  - SUPERINFECTION [None]
  - SURGERY [None]
  - TRICUSPID VALVE INCOMPETENCE [None]
  - TUMOUR HAEMORRHAGE [None]
  - TUMOUR INVASION [None]
  - TUMOUR NECROSIS [None]
